FAERS Safety Report 8081964-4 (Version None)
Quarter: 2012Q1

REPORT INFORMATION
  Report Type: 
  Country: None (occurrence: None)
  Receive Date: 20120130
  Receipt Date: 20111005
  Transmission Date: 20120608
  Serious: No
  Sender: FDA-Public Use
  Company Number: US-ABBOTT-11P-163-0862103-00

PATIENT
  Sex: Female
  Weight: 51.756 kg

DRUGS (3)
  1. UNKNOWN MEDICATIONS [Concomitant]
     Indication: DEPRESSION
  2. LUPRON DEPOT [Suspect]
     Indication: ENDOMETRIOSIS
     Route: 030
     Dates: start: 20110725, end: 20110907
  3. UNKNOWN MEDICATION [Concomitant]
     Indication: PAIN

REACTIONS (3)
  - ABDOMINAL PAIN [None]
  - DEPRESSION [None]
  - ANXIETY [None]
